FAERS Safety Report 22164432 (Version 3)
Quarter: 2025Q1

REPORT INFORMATION
  Report Type: Report from Study
  Country: US (occurrence: US)
  Receive Date: 20230403
  Receipt Date: 20250102
  Transmission Date: 20250408
  Serious: Yes (Other)
  Sender: ABBVIE
  Company Number: US-ABBVIE-4710129

PATIENT
  Age: 75 Year
  Sex: Female

DRUGS (1)
  1. SKYRIZI [Suspect]
     Active Substance: RISANKIZUMAB-RZAA
     Indication: Psoriasis
     Route: 058
     Dates: start: 20210321

REACTIONS (5)
  - Cataract [Unknown]
  - Surgery [Recovering/Resolving]
  - Pneumonia [Unknown]
  - Illness [Unknown]
  - Eye disorder [Unknown]

NARRATIVE: CASE EVENT DATE: 20220901
